FAERS Safety Report 10053681 (Version 1)
Quarter: 2014Q2

REPORT INFORMATION
  Report Type: Spontaneous
  Country: CH (occurrence: CH)
  Receive Date: 20140402
  Receipt Date: 20140402
  Transmission Date: 20141212
  Serious: Yes (Other)
  Sender: FDA-Public Use
  Company Number: CH-GE HEALTHCARE MEDICAL DIAGNOSTICS-OMPQ-PR-1403S-0309

PATIENT
  Age: 83 Year
  Sex: Male

DRUGS (11)
  1. ACCUPAQUE [Suspect]
     Indication: CATHETERISATION CARDIAC
     Route: 042
     Dates: start: 20110608, end: 20110608
  2. ACCUPAQUE [Suspect]
     Indication: DIAGNOSTIC PROCEDURE
     Route: 042
     Dates: start: 20110620, end: 20110620
  3. ACCUPAQUE [Suspect]
     Route: 042
     Dates: start: 20131115, end: 20131115
  4. CLEXANE [Concomitant]
  5. NEXIUM [Concomitant]
  6. MOVICOL [Concomitant]
  7. BELOC [Concomitant]
  8. TARGIN [Concomitant]
  9. DAFALGAN [Concomitant]
  10. LAXOBERON [Concomitant]
  11. CALCIMAGON D3 [Concomitant]

REACTIONS (2)
  - Hyperthyroidism [Not Recovered/Not Resolved]
  - Hyperthyroidism [Unknown]
